FAERS Safety Report 9042007 (Version 1)
Quarter: 2013Q1

REPORT INFORMATION
  Report Type: Report from Study
  Country: US (occurrence: US)
  Receive Date: 20130129
  Receipt Date: 20130129
  Transmission Date: 20140127
  Serious: No
  Sender: FDA-Public Use
  Company Number: US-ABBOTT-12P-163-0905369-00

PATIENT
  Sex: Female
  Weight: 104.87 kg

DRUGS (8)
  1. HUMIRA 40 MG/ 0.8 ML PRE-FILLED SYRINGE [Suspect]
     Indication: PSORIATIC ARTHROPATHY
  2. HUMIRA 40 MG/ 0.8 ML PRE-FILLED SYRINGE [Suspect]
     Indication: PSORIASIS
  3. LANTUS INSULIN [Concomitant]
     Indication: DIABETES MELLITUS
  4. ACTOS [Concomitant]
     Indication: DIABETES MELLITUS
  5. LIPITOR [Concomitant]
     Indication: BLOOD CHOLESTEROL INCREASED
  6. DEPAKOTE [Concomitant]
     Indication: CONVULSION
  7. COZAAR [Concomitant]
     Indication: HYPERTENSION
  8. GLIMEPIRIDE [Concomitant]
     Indication: DIABETES MELLITUS

REACTIONS (2)
  - Drug effect incomplete [Recovered/Resolved]
  - Injection site pain [Not Recovered/Not Resolved]
